FAERS Safety Report 5862734-1 (Version None)
Quarter: 2008Q3

REPORT INFORMATION
  Report Type: 
  Country: None (occurrence: None)
  Receive Date: 20080827
  Receipt Date: 20080827
  Transmission Date: 20090109
  Serious: Yes (Hospitalization)
  Sender: FDA-Public Use
  Company Number: None

PATIENT
  Age: 36 Year
  Sex: Female
  Weight: 74.8435 kg

DRUGS (2)
  1. ALLI [Suspect]
     Indication: WEIGHT CONTROL
     Dosage: 1 TABLET TID PO
     Route: 048
     Dates: start: 20080811, end: 20080825
  2. ALCOHOL [Suspect]

REACTIONS (2)
  - ALCOHOL ABUSE [None]
  - PANCREATITIS ACUTE [None]
